FAERS Safety Report 4555956-3 (Version None)
Quarter: 2005Q1

REPORT INFORMATION
  Report Type: 
  Country: None (occurrence: None)
  Receive Date: 20050112
  Receipt Date: 20031124
  Transmission Date: 20050727
  Serious: Yes (Other)
  Sender: FDA-Public Use
  Company Number: 200329018BWH

PATIENT
  Age: 88 Year
  Sex: Male
  Weight: 74.8435 kg

DRUGS (8)
  1. CIPRO [Suspect]
     Indication: BENIGN PROSTATIC HYPERPLASIA
     Dosage: 500 MG, TOTAL DAILY, ORAL
     Route: 048
  2. CIPRO [Suspect]
     Indication: PROSTATITIS
     Dosage: 500 MG, TOTAL DAILY, ORAL
     Route: 048
  3. DIABETA [Concomitant]
  4. K-DUR 10 [Concomitant]
  5. LANOXIN [Concomitant]
  6. LASIX [Concomitant]
  7. LIPITOR [Concomitant]
  8. ZESTRIL [Concomitant]

REACTIONS (1)
  - BLOOD URINE PRESENT [None]
